FAERS Safety Report 4819052-X (Version None)
Quarter: 2005Q4

REPORT INFORMATION
  Report Type: 
  Country: None (occurrence: None)
  Receive Date: 20051101
  Receipt Date: 20051101
  Transmission Date: 20060501
  Serious: Yes (Hospitalization)
  Sender: FDA-Public Use
  Company Number: None

PATIENT
  Age: 70 Year
  Sex: Male

DRUGS (20)
  1. NPH INSULIN [Suspect]
     Dosage: NPH 78 REG 20 IN AM   NPH 60 REG 20 IN PM
  2. REGULAR INSULIN [Suspect]
     Dosage: DOSE INCREASED   5 UNITS @ NOON
     Dates: start: 20050829
  3. ACCU-CHEK COMFORT CV(GLUCOSE) TEST STRIP [Concomitant]
  4. ALCOHOL PREP PAD [Concomitant]
  5. AMITRIPTYLINE HCL [Concomitant]
  6. BACITRACIN ZINC-POLYMYXIN B SULFATE [Concomitant]
  7. LOTRIMAZOLE [Concomitant]
  8. FUROSEMIDE [Concomitant]
  9. HEMORRHOIDAL RTL OINT [Concomitant]
  10. HYDROCODONE 5/ACETAMINOPHEN [Concomitant]
  11. HYDROCORTISONE 1/PRAMOXINE [Concomitant]
  12. HYDROPHILIC TOP OINT [Concomitant]
  13. INSULIN REG HUMAN 100 U/ML INJ NOVOLIN R [Concomitant]
  14. INSULIN SYRG [Concomitant]
  15. LANCET,TECHLITE [Concomitant]
  16. LOVASTATIN [Concomitant]
  17. METFORMIN HCL [Concomitant]
  18. RANITIDINE HCL [Concomitant]
  19. VALSARTAN [Concomitant]
  20. COUMADIN [Concomitant]

REACTIONS (2)
  - HYPOGLYCAEMIA [None]
  - INCORRECT DOSE ADMINISTERED [None]
